FAERS Safety Report 14646128 (Version 3)
Quarter: 2018Q3

REPORT INFORMATION
  Report Type: Report from Study
  Country: DE (occurrence: DE)
  Receive Date: 20180316
  Receipt Date: 20180926
  Transmission Date: 20181010
  Serious: Yes (Hospitalization, Other)
  Sender: FDA-Public Use
  Company Number: DE-ROCHE-2084993

PATIENT
  Age: 69 Year
  Sex: Female
  Weight: 87 kg

DRUGS (4)
  1. TAXOTERE [Suspect]
     Active Substance: DOCETAXEL
     Indication: BREAST CANCER
     Dosage: (TIME DIFFERENCE BETWEEN LAST INTAKE AND FIRST  SYMPTOM IN HOURS IS 192 HOURS)?THE NEXT DOSE RECEIVE
     Route: 042
     Dates: start: 20180126
  2. AMLODIPIN [Concomitant]
     Active Substance: AMLODIPINE BESYLATE
     Indication: HYPERTENSION
     Route: 048
  3. PERJETA [Suspect]
     Active Substance: PERTUZUMAB
     Indication: BREAST CANCER
     Dosage: THE NEXT DOSE RECEIVED ON 20/FEB/2018
     Route: 042
     Dates: start: 20180126
  4. TRASTUZUMAB. [Suspect]
     Active Substance: TRASTUZUMAB
     Indication: BREAST CANCER
     Dosage: TOTAL DOSE (522 MG)?THE NEXT DOSE RECEIVED ON 20/FEB/2018
     Route: 042
     Dates: start: 20180126

REACTIONS (4)
  - Fatigue [Recovered/Resolved]
  - Venous thrombosis limb [Recovered/Resolved]
  - General physical health deterioration [Not Recovered/Not Resolved]
  - Diarrhoea [Recovered/Resolved]

NARRATIVE: CASE EVENT DATE: 20180126
